FAERS Safety Report 10177110 (Version 2)
Quarter: 2014Q2

REPORT INFORMATION
  Report Type: Spontaneous
  Country: US (occurrence: US)
  Receive Date: 20140516
  Receipt Date: 20140516
  Transmission Date: 20141212
  Serious: Yes (Other)
  Sender: FDA-Public Use
  Company Number: US-BRISTOL-MYERS SQUIBB COMPANY-20678298

PATIENT
  Sex: Female

DRUGS (1)
  1. KENALOG-40 INJ [Suspect]
     Indication: SCIATICA
     Dosage: SECOND INJECTION ON 04OCT2013
     Dates: start: 20130605

REACTIONS (17)
  - Migraine [Unknown]
  - Depression [Unknown]
  - Choking [Unknown]
  - Loss of consciousness [Unknown]
  - Heart rate irregular [Unknown]
  - Abdominal distension [Unknown]
  - Vomiting [Unknown]
  - Vision blurred [Unknown]
  - Photopsia [Unknown]
  - Trismus [Unknown]
  - Lymphadenopathy [Unknown]
  - Pain [Unknown]
  - Palpitations [Unknown]
  - Anxiety [Unknown]
  - Injection site atrophy [Unknown]
  - Pain in extremity [Unknown]
  - Superficial vein prominence [Unknown]
